FAERS Safety Report 10313324 (Version 2)
Quarter: 2014Q3

REPORT INFORMATION
  Report Type: Report from Study
  Country: US (occurrence: US)
  Receive Date: 20140718
  Receipt Date: 20140910
  Transmission Date: 20150326
  Serious: Yes (Hospitalization, Other)
  Sender: FDA-Public Use
  Company Number: US-JNJFOC-20140708712

PATIENT
  Age: 17 Year
  Sex: Male
  Weight: 89.81 kg

DRUGS (1)
  1. REMICADE [Suspect]
     Active Substance: INFLIXIMAB
     Indication: CROHN^S DISEASE
     Route: 042
     Dates: start: 200709

REACTIONS (5)
  - Abdominal pain [Recovered/Resolved]
  - Obstruction [Unknown]
  - Procedural site reaction [Unknown]
  - Vein collapse [Recovered/Resolved]
  - Gastrointestinal perforation [Recovered/Resolved]

NARRATIVE: CASE EVENT DATE: 200802
